FAERS Safety Report 9197596 (Version 1)
Quarter: 2013Q1

REPORT INFORMATION
  Report Type: Spontaneous
  Country: US (occurrence: None)
  Receive Date: 20120709
  Receipt Date: 20120709
  Transmission Date: 20140127
  Serious: Yes (Death, Hospitalization)
  Sender: FDA-Public Use
  Company Number: PHHY2011US47744

PATIENT
  Age: 41 Year
  Sex: Female

DRUGS (1)
  1. GLEEVEC [Suspect]
     Dosage: UNK
     Route: 048

REACTIONS (8)
  - Chronic myeloid leukaemia [None]
  - Neutropenia [None]
  - Thrombocytopenia [None]
  - Bacteraemia [None]
  - Asthenia [None]
  - Confusional state [None]
  - Musculoskeletal pain [None]
  - Dysphagia [None]
